FAERS Safety Report 12578938 (Version 1)
Quarter: 2016Q3

REPORT INFORMATION
  Report Type: Spontaneous
  Country: US (occurrence: None)
  Receive Date: 20160720
  Receipt Date: 20160720
  Transmission Date: 20161109
  Serious: Yes (Other)
  Sender: FDA-Public Use
  Company Number: None

PATIENT
  Age: 23 Year
  Sex: Female
  Weight: 26.94 kg

DRUGS (1)
  1. DAPTOMYCIN 500MG CUBIST [Suspect]
     Active Substance: DAPTOMYCIN
     Indication: DECUBITUS ULCER
     Dosage: 150MG Q24 IV-PORT
     Route: 042
     Dates: start: 20160318, end: 20160330

REACTIONS (2)
  - Muscle disorder [None]
  - Arthralgia [None]

NARRATIVE: CASE EVENT DATE: 20160401
